FAERS Safety Report 21445412 (Version 2)
Quarter: 2022Q4

REPORT INFORMATION
  Report Type: Spontaneous
  Country: JP (occurrence: JP)
  Receive Date: 20221012
  Receipt Date: 20221031
  Transmission Date: 20230113
  Serious: Yes (Other)
  Sender: FDA-Public Use
  Company Number: JP-UCBSA-2022058923

PATIENT
  Age: 10 Year
  Sex: Female
  Weight: 16 kg

DRUGS (2)
  1. VIMPAT [Suspect]
     Active Substance: LACOSAMIDE
     Indication: Epilepsy
     Dosage: 75 MILLIGRAM, ONCE DAILY (QD)
     Route: 048
  2. ZONISAMIDE [Suspect]
     Active Substance: ZONISAMIDE
     Indication: Epilepsy
     Dosage: UNKNOWN DOSE

REACTIONS (3)
  - Clonic convulsion [Recovering/Resolving]
  - Off label use [Unknown]
  - Underdose [Unknown]
